FAERS Safety Report 24549116 (Version 1)
Quarter: 2024Q4

REPORT INFORMATION
  Report Type: Spontaneous
  Country: CN (occurrence: CN)
  Receive Date: 20241025
  Receipt Date: 20241025
  Transmission Date: 20250114
  Serious: Yes (Other)
  Sender: BAYER HEALTHCARE PHARMACEUTICALS INC.
  Company Number: CN-BAYER-2024A152889

PATIENT
  Age: 73 Year
  Sex: Female
  Weight: 78 kg

DRUGS (2)
  1. ULTRAVIST [Suspect]
     Active Substance: IOPROMIDE
     Indication: Computerised tomogram abdomen
     Dosage: 89 ML, ONCE
     Route: 042
     Dates: start: 20241015, end: 20241015
  2. ULTRAVIST [Suspect]
     Active Substance: IOPROMIDE
     Indication: Stomach mass

REACTIONS (6)
  - Contrast media allergy [Recovered/Resolved]
  - Muscular weakness [Recovered/Resolved]
  - Hyperhidrosis [Recovered/Resolved]
  - Blood pressure decreased [Recovering/Resolving]
  - Oxygen saturation decreased [None]
  - Nausea [Recovered/Resolved]

NARRATIVE: CASE EVENT DATE: 20241015
